FAERS Safety Report 8101151-0 (Version None)
Quarter: 2012Q1

REPORT INFORMATION
  Report Type: 
  Country: None (occurrence: None)
  Receive Date: 20120129
  Receipt Date: 20111014
  Transmission Date: 20120608
  Serious: No
  Sender: FDA-Public Use
  Company Number: US-ABBOTT-11P-163-0863755-00

PATIENT

DRUGS (1)
  1. HUMIRA [Suspect]
     Indication: PRODUCT USED FOR UNKNOWN INDICATION
     Dosage: LOADING DOSES 4 SHOTS THEN 2 SHOTS

REACTIONS (4)
  - COLONIC STENOSIS [None]
  - VOMITING [None]
  - GASTROINTESTINAL OBSTRUCTION [None]
  - GASTROINTESTINAL INFLAMMATION [None]
